FAERS Safety Report 25469514 (Version 1)
Quarter: 2025Q2

REPORT INFORMATION
  Report Type: Spontaneous
  Country: JP (occurrence: JP)
  Receive Date: 20250623
  Receipt Date: 20250623
  Transmission Date: 20250716
  Serious: Yes (Other)
  Sender: MERCK SHARP & DOHME LLC
  Company Number: JP-009507513-2296361

PATIENT
  Sex: Female

DRUGS (2)
  1. KEYTRUDA [Suspect]
     Active Substance: PEMBROLIZUMAB
     Indication: Uterine cancer
     Dosage: 200MG ONCE EVERY 3 WEEKS
     Route: 041
     Dates: start: 20250321
  2. LENVIMA [Suspect]
     Active Substance: LENVATINIB
     Indication: Uterine cancer
     Dosage: 20MG ONCE EVERYDAY
     Route: 048
     Dates: start: 20250321

REACTIONS (2)
  - Immune-mediated adrenal insufficiency [Recovered/Resolved]
  - Angina pectoris [Not Recovered/Not Resolved]

NARRATIVE: CASE EVENT DATE: 20250516
